FAERS Safety Report 6962386-3 (Version None)
Quarter: 2010Q3

REPORT INFORMATION
  Report Type: 
  Country: None (occurrence: None)
  Receive Date: 20100902
  Receipt Date: 20100820
  Transmission Date: 20110219
  Serious: No
  Sender: FDA-Public Use
  Company Number: US-JNJFOC-20100807834

PATIENT
  Sex: Male
  Weight: 80.74 kg

DRUGS (9)
  1. FENTANYL CITRATE [Suspect]
     Indication: PAIN
     Dosage: NDC-0781-7241-55
     Route: 062
  2. KLOR-CON [Concomitant]
     Route: 048
  3. LISINOPRIL AND HYDROCHLOROTHIAZIDE [Concomitant]
     Dosage: 12/12.5 MG
     Route: 048
  4. GABAPENTIN [Concomitant]
     Route: 048
  5. ASPIRIN [Concomitant]
     Route: 048
  6. MECLIZINE [Concomitant]
     Route: 048
  7. LORAZEPAM [Concomitant]
     Route: 048
  8. DIVALPROEX SODIUM [Concomitant]
     Route: 048
  9. HYDROCODONE [Concomitant]
     Dosage: 10-50 MG
     Route: 048

REACTIONS (5)
  - FEELING ABNORMAL [None]
  - FEELING HOT [None]
  - PAIN OF SKIN [None]
  - SKIN BURNING SENSATION [None]
  - TREATMENT NONCOMPLIANCE [None]
